FAERS Safety Report 8045672-8 (Version None)
Quarter: 2012Q1

REPORT INFORMATION
  Report Type: 
  Country: None (occurrence: None)
  Receive Date: 20120113
  Receipt Date: 20120104
  Transmission Date: 20120608
  Serious: Yes (Other)
  Sender: FDA-Public Use
  Company Number: FR-VERTEX PHARMACEUTICALS INC.-000000000000000081

PATIENT
  Age: 49 Year
  Sex: Female

DRUGS (3)
  1. TELAPREVIR [Suspect]
     Indication: HEPATITIS C
     Dosage: DOSAGE FORM: TABLET
     Route: 048
  2. REBETOL [Concomitant]
     Indication: HEPATITIS C
     Dosage: DOSAGE FORM: CAPSULE
     Route: 048
  3. PEGASYS [Concomitant]
     Indication: HEPATITIS C

REACTIONS (2)
  - RASH [None]
  - ANAEMIA [None]
